FAERS Safety Report 25954170 (Version 1)
Quarter: 2025Q4

REPORT INFORMATION
  Report Type: Other
  Country: IN (occurrence: IN)
  Receive Date: 20251023
  Receipt Date: 20251023
  Transmission Date: 20260117
  Serious: Yes (Hospitalization, Other)
  Sender: BRECKENRIDGE PHARMACEUTICAL, INC.
  Company Number: IN-Breckenridge Pharmaceutical, Inc.-2187168

PATIENT
  Age: 34 Year
  Sex: Female

DRUGS (1)
  1. AMITRIPTYLINE [Suspect]
     Active Substance: AMITRIPTYLINE
     Indication: Migraine

REACTIONS (6)
  - Hypersensitivity [Recovered/Resolved]
  - Urine analysis abnormal [Unknown]
  - Dyspnoea [Recovered/Resolved]
  - Idiosyncratic drug reaction [Recovered/Resolved]
  - Angioedema [Recovered/Resolved]
  - Rash maculo-papular [Recovered/Resolved]
